FAERS Safety Report 7122123-9 (Version None)
Quarter: 2010Q4

REPORT INFORMATION
  Report Type: 
  Country: None (occurrence: None)
  Receive Date: 20101124
  Receipt Date: 20101119
  Transmission Date: 20110411
  Serious: Yes (Other)
  Sender: FDA-Public Use
  Company Number: US-US-EMD SERONO, INC.-7028683

PATIENT
  Sex: Female
  Weight: 83 kg

DRUGS (4)
  1. REBIF [Suspect]
     Indication: MULTIPLE SCLEROSIS
     Route: 058
     Dates: start: 20060411
  2. MOTRIN [Concomitant]
     Indication: PREMEDICATION
  3. CYMBALTA [Concomitant]
     Indication: DEPRESSION
  4. LYRICA [Concomitant]
     Indication: PAIN

REACTIONS (4)
  - GALLBLADDER NON-FUNCTIONING [None]
  - HEPATOBILIARY SCAN ABNORMAL [None]
  - INFLUENZA LIKE ILLNESS [None]
  - POLYP [None]
